FAERS Safety Report 23689170 (Version 1)
Quarter: 2024Q1

REPORT INFORMATION
  Report Type: Spontaneous
  Country: DE (occurrence: DE)
  Receive Date: 20240330
  Receipt Date: 20240330
  Transmission Date: 20240410
  Serious: Yes (Other)
  Sender: FDA-Public Use
  Company Number: DE-ABBVIE-21K-062-4195282-00

PATIENT
  Age: 49 Year
  Sex: Female

DRUGS (6)
  1. VALPROATE SODIUM [Suspect]
     Active Substance: VALPROATE SODIUM
     Indication: Chorea-acanthocytosis
     Dosage: (2 X 1000 MILLIGRAM)
     Route: 065
  2. LEVETIRACETAM [Suspect]
     Active Substance: LEVETIRACETAM
     Indication: Chorea-acanthocytosis
     Dosage: (2X2000MG)
     Route: 065
  3. DASATINIB [Suspect]
     Active Substance: DASATINIB
     Indication: Chronic myeloid leukaemia
     Route: 048
  4. ZONISAMIDE [Suspect]
     Active Substance: ZONISAMIDE
     Indication: Chorea-acanthocytosis
     Dosage: 200 MG (2X100 MG)
     Route: 065
  5. CLOBAZAM [Suspect]
     Active Substance: CLOBAZAM
     Indication: Chorea-acanthocytosis
     Dosage: 2X5 MG
     Route: 065
  6. VITAMIN D [Concomitant]
     Active Substance: VITAMIN D NOS
     Indication: Product used for unknown indication
     Route: 065

REACTIONS (6)
  - Frequent bowel movements [Unknown]
  - Haematocrit decreased [Recovered/Resolved]
  - Acne [Unknown]
  - Alopecia [Unknown]
  - Thrombocytopenia [Recovered/Resolved]
  - Red blood cell count decreased [Recovered/Resolved]
